FAERS Safety Report 5510431-4 (Version None)
Quarter: 2007Q4

REPORT INFORMATION
  Report Type: 
  Country: None (occurrence: None)
  Receive Date: 20071108
  Receipt Date: 20071102
  Transmission Date: 20080405
  Serious: Yes (Other)
  Sender: FDA-Public Use
  Company Number: CA-PFIZER INC-2007092997

PATIENT
  Sex: Male

DRUGS (1)
  1. VIRACEPT [Suspect]
     Route: 048

REACTIONS (1)
  - NEOPLASM MALIGNANT [None]
